FAERS Safety Report 20706618 (Version 1)
Quarter: 2022Q2

REPORT INFORMATION
  Report Type: Spontaneous
  Country: US (occurrence: US)
  Receive Date: 20220413
  Receipt Date: 20220413
  Transmission Date: 20220721
  Serious: No
  Sender: FDA-Public Use
  Company Number: US-SA-2022SA127487

PATIENT
  Age: 36 Year
  Sex: Female

DRUGS (12)
  1. FABRAZYME [Suspect]
     Active Substance: AGALSIDASE BETA
     Indication: Fabry^s disease
     Dosage: 75 MG, QOW
     Route: 042
     Dates: start: 20180210
  2. XANAX [Concomitant]
     Active Substance: ALPRAZOLAM
  3. NORETHINDRONE [Concomitant]
     Active Substance: NORETHINDRONE
  4. ACETAMINOPHEN [Concomitant]
     Active Substance: ACETAMINOPHEN
  5. DIPHENHYDRAMINE [Concomitant]
     Active Substance: DIPHENHYDRAMINE
  6. HEPARIN [Concomitant]
     Active Substance: HEPARIN SODIUM
  7. EPINEPHRINE [Concomitant]
     Active Substance: EPINEPHRINE
  8. ASPIRIN [Concomitant]
     Active Substance: ASPIRIN
  9. VENLAFAXINE [Concomitant]
     Active Substance: VENLAFAXINE HYDROCHLORIDE
  10. WELLBUTRIN SR [Concomitant]
     Active Substance: BUPROPION HYDROCHLORIDE
  11. SODIUM CHLORIDE [Concomitant]
     Active Substance: SODIUM CHLORIDE
  12. STERILE WATER [Concomitant]
     Active Substance: WATER

REACTIONS (1)
  - COVID-19 [Unknown]

NARRATIVE: CASE EVENT DATE: 20220304
